FAERS Safety Report 8162451-1 (Version None)
Quarter: 2012Q1

REPORT INFORMATION
  Report Type: 
  Country: None (occurrence: None)
  Receive Date: 20120103
  Receipt Date: 20110927
  Transmission Date: 20120608
  Serious: No
  Sender: FDA-Public Use
  Company Number: AE-2011-001854

PATIENT
  Age: 50 Year
  Sex: Female
  Weight: 72.5755 kg

DRUGS (14)
  1. CHLORTHALIDONE [Concomitant]
  2. ADVAIR 100/50 (SERETIDE MITE) [Concomitant]
  3. NEXIUM [Concomitant]
  4. RIBAVIRIN [Concomitant]
  5. CLONAZEPAM [Concomitant]
  6. VICODIN [Concomitant]
  7. DIOVAN [Concomitant]
  8. PEGASYS [Concomitant]
  9. EFFEXOR [Concomitant]
  10. ALBUTEROL [Concomitant]
  11. BONIVA [Concomitant]
  12. ACETAMINOPHEN [Concomitant]
  13. INCIVEK [Suspect]
     Dosage: 2250 MG (750 MG, 3 IN 1 D), ORAL
     Route: 048
     Dates: start: 20110908
  14. STOOL SOFTNERS (DOCUSATE SODIUM) [Concomitant]

REACTIONS (7)
  - MUSCULAR WEAKNESS [None]
  - HYPOTENSION [None]
  - DIZZINESS [None]
  - URINARY TRACT INFECTION [None]
  - MALAISE [None]
  - GASTROOESOPHAGEAL REFLUX DISEASE [None]
  - DEPRESSION [None]
